FAERS Safety Report 10878298 (Version 1)
Quarter: 2015Q1

REPORT INFORMATION
  Report Type: Report from Study
  Country: IT (occurrence: IT)
  Receive Date: 20150302
  Receipt Date: 20150302
  Transmission Date: 20150721
  Serious: Yes (Hospitalization)
  Sender: FDA-Public Use
  Company Number: IT-B.I. PHARMACEUTICALS,INC./RIDGEFIELD-2015-BI-09988GD

PATIENT
  Age: 65 Year
  Sex: Female

DRUGS (9)
  1. NEBIVOLOL [Concomitant]
     Active Substance: NEBIVOLOL
     Indication: PRODUCT USED FOR UNKNOWN INDICATION
     Route: 065
  2. PRADAXA [Suspect]
     Active Substance: DABIGATRAN ETEXILATE MESYLATE
     Indication: PRODUCT USED FOR UNKNOWN INDICATION
     Route: 065
  3. FLUTICASONE [Concomitant]
     Active Substance: FLUTICASONE\FLUTICASONE PROPIONATE
     Indication: PRODUCT USED FOR UNKNOWN INDICATION
     Route: 065
  4. MECLOZINE [Concomitant]
     Active Substance: MECLIZINE\MECLIZINE HYDROCHLORIDE
     Indication: PRODUCT USED FOR UNKNOWN INDICATION
     Route: 065
  5. DULOXETINE [Suspect]
     Active Substance: DULOXETINE
     Indication: PRODUCT USED FOR UNKNOWN INDICATION
     Route: 065
  6. CLONAZEPAM. [Concomitant]
     Active Substance: CLONAZEPAM
     Indication: PRODUCT USED FOR UNKNOWN INDICATION
     Route: 065
  7. ESTRADIOL. [Concomitant]
     Active Substance: ESTRADIOL
     Indication: PRODUCT USED FOR UNKNOWN INDICATION
     Route: 065
  8. FAMOTIDINE. [Concomitant]
     Active Substance: FAMOTIDINE
     Indication: PRODUCT USED FOR UNKNOWN INDICATION
     Route: 065
  9. OXYBUTIN [Concomitant]
     Active Substance: OXYBUTYNIN
     Indication: PRODUCT USED FOR UNKNOWN INDICATION
     Route: 065

REACTIONS (31)
  - Protein total decreased [Unknown]
  - Encephalopathy [Unknown]
  - Ischaemia [Unknown]
  - Haemoglobin decreased [Unknown]
  - Pulmonary hypertension [Unknown]
  - White blood cell count increased [Unknown]
  - Hepatic steatosis [Unknown]
  - Haematocrit decreased [Unknown]
  - Atrial fibrillation [Unknown]
  - Blood chloride decreased [Unknown]
  - Confusional state [Unknown]
  - Blood calcium decreased [Unknown]
  - Rectal haemorrhage [Unknown]
  - Malaise [Unknown]
  - Mitral valve incompetence [Unknown]
  - Tricuspid valve incompetence [Unknown]
  - Congestive cardiomyopathy [Unknown]
  - Blood glucose increased [Unknown]
  - Hyponatraemia [Unknown]
  - Carbon dioxide decreased [Unknown]
  - Hepatic failure [Unknown]
  - Hepatitis viral [Unknown]
  - Aphasia [Unknown]
  - Blood albumin decreased [Unknown]
  - Ejection fraction decreased [Unknown]
  - Left ventricular dysfunction [Unknown]
  - Hepatitis acute [Unknown]
  - Sedation [Unknown]
  - Blood potassium decreased [Unknown]
  - Dysarthria [Unknown]
  - Feeling abnormal [Unknown]

NARRATIVE: CASE EVENT DATE: 20110101
